FAERS Safety Report 10669776 (Version 1)
Quarter: 2014Q4

REPORT INFORMATION
  Report Type: Spontaneous
  Country: US (occurrence: US)
  Receive Date: 20141222
  Receipt Date: 20141222
  Transmission Date: 20150529
  Serious: Yes (Death)
  Sender: FDA-Public Use
  Company Number: US-SA-2014SA173606

PATIENT
  Age: 91 Year
  Sex: Male

DRUGS (5)
  1. NOVOLOG [Concomitant]
     Active Substance: INSULIN ASPART
  2. HUMALOG [Concomitant]
     Active Substance: INSULIN LISPRO
  3. LANTUS SOLOSTAR [Suspect]
     Active Substance: INSULIN GLARGINE
     Indication: TYPE 2 DIABETES MELLITUS
     Route: 065
     Dates: end: 2009
  4. OPTICLICK [Concomitant]
     Active Substance: DEVICE
     Dates: end: 2009
  5. SOLOSTAR [Concomitant]
     Active Substance: DEVICE
     Dates: end: 2009

REACTIONS (1)
  - Death [Fatal]

NARRATIVE: CASE EVENT DATE: 2009
